FAERS Safety Report 5735041-5 (Version None)
Quarter: 2008Q2

REPORT INFORMATION
  Report Type: 
  Country: None (occurrence: None)
  Receive Date: 20080512
  Receipt Date: 20080430
  Transmission Date: 20081010
  Serious: Yes (Other)
  Sender: FDA-Public Use
  Company Number: CH-ROCHE-562521

PATIENT
  Age: 16 Year
  Sex: Female
  Weight: 53 kg

DRUGS (1)
  1. ROACCUTANE GEL [Suspect]
     Indication: ACNE
     Route: 061
     Dates: start: 19950101, end: 20000101

REACTIONS (4)
  - DEPERSONALISATION [None]
  - INSOMNIA [None]
  - PANIC REACTION [None]
  - TREMOR [None]
